FAERS Safety Report 9319278 (Version 1)
Quarter: 2013Q2

REPORT INFORMATION
  Report Type: Spontaneous
  Country: US (occurrence: None)
  Receive Date: 20130529
  Receipt Date: 20130529
  Transmission Date: 20140414
  Serious: Yes (Other)
  Sender: FDA-Public Use
  Company Number: None

PATIENT
  Age: 12 Year
  Sex: Female
  Weight: 50.4 kg

DRUGS (1)
  1. DEPAKOTE [Suspect]
     Indication: MYOCLONIC EPILEPSY
     Dosage: 3 BID PO
     Dates: start: 200910

REACTIONS (1)
  - Epilepsy [None]
